FAERS Safety Report 9765618 (Version 1)
Quarter: 2013Q4

REPORT INFORMATION
  Report Type: Spontaneous
  Country: US (occurrence: US)
  Receive Date: 20131217
  Receipt Date: 20131217
  Transmission Date: 20140711
  Serious: No
  Sender: FDA-Public Use
  Company Number: US-GLAXOSMITHKLINE-A1008277A

PATIENT
  Age: 60 Year
  Sex: Male

DRUGS (4)
  1. VOTRIENT [Suspect]
     Indication: PRODUCT USED FOR UNKNOWN INDICATION
     Dosage: 400MG TWICE PER DAY
     Route: 048
  2. FISH OIL [Concomitant]
  3. LOSARTAN POTASSIUM [Concomitant]
  4. KOMBIGLYZE XR [Concomitant]

REACTIONS (3)
  - Malaise [Unknown]
  - Fatigue [Unknown]
  - Diarrhoea [Unknown]
